FAERS Safety Report 15749653 (Version 1)
Quarter: 2018Q4

REPORT INFORMATION
  Report Type: Report from Study
  Country: GB (occurrence: GB)
  Receive Date: 20181221
  Receipt Date: 20181221
  Transmission Date: 20190205
  Serious: Yes (Other)
  Sender: FDA-Public Use
  Company Number: GB-TEVA-2018-GB-991098

PATIENT
  Sex: Female

DRUGS (1)
  1. COPAXONE [Suspect]
     Active Substance: GLATIRAMER ACETATE
     Indication: MULTIPLE SCLEROSIS
     Route: 058

REACTIONS (10)
  - Dysgeusia [Unknown]
  - Injection related reaction [Unknown]
  - Product packaging issue [Unknown]
  - Chills [Unknown]
  - Generalised erythema [Unknown]
  - Chest pain [Unknown]
  - Throat tightness [Unknown]
  - Chest discomfort [Unknown]
  - Feeling hot [Unknown]
  - Feeling cold [Unknown]
